FAERS Safety Report 11283799 (Version 3)
Quarter: 2015Q4

REPORT INFORMATION
  Report Type: Spontaneous
  Country: US (occurrence: US)
  Receive Date: 20150720
  Receipt Date: 20151001
  Transmission Date: 20160304
  Serious: No
  Sender: FDA-Public Use
  Company Number: US-PFIZER INC-2015237051

PATIENT
  Age: 45 Year
  Sex: Female

DRUGS (5)
  1. TRAZODONE [Concomitant]
     Active Substance: TRAZODONE HYDROCHLORIDE
     Indication: INSOMNIA
     Dosage: 150 MG, 1X/DAY (1-2 AT BEDTIME)
     Route: 048
     Dates: start: 20150627
  2. EFFEXOR XR [Suspect]
     Active Substance: VENLAFAXINE HYDROCHLORIDE
     Indication: DEPRESSION
  3. EFFEXOR XR [Suspect]
     Active Substance: VENLAFAXINE HYDROCHLORIDE
     Indication: ANXIETY
     Dosage: 75 MG, 1X/DAY (MORNING)
     Route: 048
     Dates: start: 20150627
  4. DIAZEPAM. [Concomitant]
     Active Substance: DIAZEPAM
     Indication: ANXIETY
     Dosage: 10 MG, (3X/DAY) AS NEEDED
     Route: 048
     Dates: start: 20150627
  5. PRAZOSIN [Concomitant]
     Active Substance: PRAZOSIN
     Indication: INSOMNIA
     Dosage: 2 MG, 1X/DAY (AT BEDTIME)
     Route: 048
     Dates: start: 20150627

REACTIONS (2)
  - Vomiting [Recovered/Resolved]
  - Nausea [Recovered/Resolved]

NARRATIVE: CASE EVENT DATE: 20150628
